FAERS Safety Report 10021374 (Version 3)
Quarter: 2014Q1

REPORT INFORMATION
  Report Type: Spontaneous
  Country: IT (occurrence: IT)
  Receive Date: 20140319
  Receipt Date: 20140325
  Transmission Date: 20141002
  Serious: Yes (Hospitalization)
  Sender: FDA-Public Use
  Company Number: IT-009507513-1401ITA010201

PATIENT
  Age: 88 Year
  Sex: Female

DRUGS (8)
  1. LISINOPRIL [Suspect]
     Dosage: UNK
     Route: 048
     Dates: start: 20130101, end: 20131112
  2. NITROGLYCERIN [Suspect]
     Dosage: 10 MG, QD
     Route: 062
     Dates: start: 20130101, end: 20131112
  3. FUROSEMIDE [Suspect]
     Dosage: UNK
     Dates: start: 20130101, end: 20131112
  4. BISOPROLOL FUMARATE [Suspect]
     Dosage: UNK
     Dates: start: 20130101, end: 20131112
  5. AMLODIPINE BESYLATE [Suspect]
     Dosage: UNK
     Dates: start: 20130101, end: 20131112
  6. LORAZEPAM [Suspect]
     Dosage: UNK
     Dates: start: 20130101, end: 20131112
  7. PLAVIX [Concomitant]
     Route: 048
  8. ATORVASTATIN CALCIUM [Concomitant]

REACTIONS (1)
  - Syncope [Recovering/Resolving]
